FAERS Safety Report 15894252 (Version 1)
Quarter: 2019Q1

REPORT INFORMATION
  Report Type: Spontaneous
  Country: FR (occurrence: FR)
  Receive Date: 20190131
  Receipt Date: 20190131
  Transmission Date: 20190417
  Serious: Yes (Other)
  Sender: FDA-Public Use
  Company Number: FR-ROCHE-2254826

PATIENT
  Age: 73 Year
  Sex: Male
  Weight: 78 kg

DRUGS (1)
  1. TECENTRIQ [Suspect]
     Active Substance: ATEZOLIZUMAB
     Indication: TRANSITIONAL CELL CARCINOMA
     Route: 041
     Dates: start: 20151201, end: 20171128

REACTIONS (3)
  - Colitis ulcerative [Recovering/Resolving]
  - Eczema [Recovering/Resolving]
  - Genital rash [Recovering/Resolving]

NARRATIVE: CASE EVENT DATE: 20170531
